FAERS Safety Report 16703018 (Version 1)
Quarter: 2019Q3

REPORT INFORMATION
  Report Type: Spontaneous
  Country: US (occurrence: US)
  Receive Date: 20190628
  Receipt Date: 20190628
  Transmission Date: 20191004
  Serious: No
  Sender: FDA-Public Use
  Company Number: None

PATIENT
  Age: 56 Year
  Sex: Female

DRUGS (1)
  1. FORTEO [Suspect]
     Active Substance: TERIPARATIDE
     Route: 058
     Dates: start: 201903

REACTIONS (5)
  - Malaise [None]
  - Tremor [None]
  - Anxiety [None]
  - Therapy cessation [None]
  - Palpitations [None]

NARRATIVE: CASE EVENT DATE: 20190628
